FAERS Safety Report 9122760 (Version 1)
Quarter: 2013Q1

REPORT INFORMATION
  Report Type: Spontaneous
  Country: US (occurrence: None)
  Receive Date: 20130225
  Receipt Date: 20130225
  Transmission Date: 20140127
  Serious: Yes (Disabling, Other)
  Sender: FDA-Public Use
  Company Number: None

PATIENT
  Age: 69 Year
  Sex: Female
  Weight: 58.06 kg

DRUGS (2)
  1. FOSAMAX [Suspect]
     Indication: OSTEOPOROSIS
     Dosage: 1 - 70 MG. PILL 1 X WK PO
     Dates: start: 20021215, end: 20090315
  2. ELECTRICAL STIMULATOR [Suspect]

REACTIONS (7)
  - Pain in extremity [None]
  - Gait disturbance [None]
  - Femur fracture [None]
  - Gait disturbance [None]
  - Bone disorder [None]
  - Nuclear magnetic resonance imaging abnormal [None]
  - Secretion discharge [None]
